FAERS Safety Report 8784388 (Version 1)
Quarter: 2012Q4

REPORT INFORMATION
  Report Type: 
  Country: IT (occurrence: IT)
  Receive Date: 20120913
  Receipt Date: 20120913
  Transmission Date: 20130627
  Serious: Yes (Hospitalization, Other)
  Sender: FDA-Public Use
  Company Number: IT-BRISTOL-MYERS SQUIBB COMPANY-16930356

PATIENT
  Age: 81 Year
  Sex: Female

DRUGS (8)
  1. COUMADIN TABS 5 MG [Suspect]
     Dates: start: 20120531, end: 20120613
  2. LERCANIDIPINE HCL [Concomitant]
     Route: 048
  3. BISOPROLOL HEMIFUMARATE [Concomitant]
  4. LOSARTAN POTASSIUM + HCTZ [Suspect]
  5. ZOLOFT [Concomitant]
     Dosage: Tabs
     Route: 048
  6. AMIODARONE [Concomitant]
     Dosage: Tabs
  7. LANOXIN [Concomitant]
     Dosage: Tabs
  8. DIBASE [Concomitant]
     Dosage: 1df=25000IU/2.5ml
Oral solution
     Route: 048

REACTIONS (2)
  - Subdural haematoma [Unknown]
  - Fall [Unknown]
